FAERS Safety Report 9467114 (Version 2)
Quarter: 2013Q3

REPORT INFORMATION
  Report Type: Spontaneous
  Country: US (occurrence: US)
  Receive Date: 20130820
  Receipt Date: 20130820
  Transmission Date: 20140515
  Serious: No
  Sender: FDA-Public Use
  Company Number: US-CUBIST PHARMACEUTICAL, INC.-2012US000008

PATIENT
  Sex: Female

DRUGS (12)
  1. ENTEREG [Suspect]
     Indication: POSTOPERATIVE ILEUS
     Dosage: 12 MG, UNK
     Route: 048
     Dates: start: 20110727, end: 20110801
  2. ZOCOR [Concomitant]
     Dosage: UNK UNK, UNK
  3. SOTALOL [Concomitant]
     Dosage: 120 MG, BID
  4. ZOLOFT [Concomitant]
     Dosage: UNK UNK, UNK
  5. XANAX [Concomitant]
     Dosage: UNK UNK, UNK
  6. QUINAPRIL [Concomitant]
     Dosage: UNK UNK, UNK
  7. CIPRO [Concomitant]
     Dosage: UNK UNK, UNK
  8. PROTONIX [Concomitant]
     Dosage: UNK UNK, UNK
  9. TERAZOSIN [Concomitant]
     Dosage: UNK UNK, UNK
  10. LOPRESSOR [Concomitant]
     Dosage: UNK UNK, UNK
  11. ZYVOX [Concomitant]
     Dosage: UNK UNK, UNK
  12. LOVENOX [Concomitant]
     Dosage: UNK UNK, UNK

REACTIONS (1)
  - Ventricular tachycardia [Recovered/Resolved]
